FAERS Safety Report 24304275 (Version 1)
Quarter: 2024Q3

REPORT INFORMATION
  Report Type: Report from Study
  Country: GB (occurrence: GB)
  Receive Date: 20240910
  Receipt Date: 20240910
  Transmission Date: 20241017
  Serious: Yes (Other)
  Sender: ELI LILLY AND CO
  Company Number: GB-Merck Healthcare KGaA-2024047975

PATIENT
  Age: 80 Year
  Sex: Male

DRUGS (5)
  1. CETUXIMAB [Suspect]
     Active Substance: CETUXIMAB
     Indication: Squamous cell carcinoma of pharynx
     Dosage: 250 MG/M2, WEEKLY (1/W)
     Route: 042
     Dates: start: 20190626
  2. CETUXIMAB [Suspect]
     Active Substance: CETUXIMAB
     Dosage: 325 MG, 2/M
     Route: 042
     Dates: start: 201908, end: 202003
  3. FLUOROURACIL [Concomitant]
     Active Substance: FLUOROURACIL
     Indication: Squamous cell carcinoma of the oral cavity
     Dosage: 750 MG/M2, ONCE EVERY 3 WEEKS
     Route: 042
     Dates: start: 20190128
  4. CARBOPLATIN [Concomitant]
     Active Substance: CARBOPLATIN
     Indication: Squamous cell carcinoma of the oral cavity
     Dosage: UNK
     Dates: start: 20190626
  5. CARBOPLATIN [Concomitant]
     Active Substance: CARBOPLATIN
     Dosage: ONCE EVERY 3 WEEKS
     Route: 042
     Dates: start: 20190128

REACTIONS (6)
  - Aortic valve calcification [Unknown]
  - Ventricular tachycardia [Unknown]
  - Coronary artery stenosis [Unknown]
  - Left ventricular failure [Unknown]
  - Lung opacity [Unknown]
  - Off label use [Unknown]

NARRATIVE: CASE EVENT DATE: 20220701
